FAERS Safety Report 9741506 (Version 2)
Quarter: 2013Q4

REPORT INFORMATION
  Report Type: Report from Study
  Country: NL (occurrence: NL)
  Receive Date: 20131209
  Receipt Date: 20131211
  Transmission Date: 20140711
  Serious: Yes (Death)
  Sender: FDA-Public Use
  Company Number: NL-ROCHE-1316669

PATIENT
  Sex: Male

DRUGS (9)
  1. MIRCERA [Suspect]
     Indication: NEPHROGENIC ANAEMIA
     Dosage: 120 INJECTION FLUID 400UG/ML WWSP 0.3ML
     Route: 058
     Dates: start: 20130911
  2. AMLODIPINE [Concomitant]
  3. TOLBUTAMIDE [Concomitant]
  4. FERROUS FUMARATE [Concomitant]
  5. NEORECORMON [Concomitant]
     Route: 065
  6. ASCAL [Concomitant]
  7. TAMSULOSIN [Concomitant]
  8. FUROSEMIDE [Concomitant]
  9. VITAMIN D3 [Concomitant]

REACTIONS (1)
  - Death [Fatal]
